FAERS Safety Report 7416015-5 (Version None)
Quarter: 2011Q2

REPORT INFORMATION
  Report Type: 
  Country: None (occurrence: None)
  Receive Date: 20110414
  Receipt Date: 20110408
  Transmission Date: 20111010
  Serious: Yes (Other)
  Sender: FDA-Public Use
  Company Number: US-ABBOTT-11P-163-0718110-00

PATIENT
  Sex: Male

DRUGS (1)
  1. VICODIN [Suspect]
     Indication: ARTHRALGIA

REACTIONS (1)
  - ANAPHYLACTIC SHOCK [None]
